FAERS Safety Report 6689323-3 (Version None)
Quarter: 2010Q2

REPORT INFORMATION
  Report Type: 
  Country: None (occurrence: None)
  Receive Date: 20100416
  Receipt Date: 20100401
  Transmission Date: 20101027
  Serious: Yes (Hospitalization)
  Sender: FDA-Public Use
  Company Number: US-JNJFOC-20091103489

PATIENT
  Age: 68 Year
  Sex: Male
  Weight: 119.7 kg

DRUGS (4)
  1. DECITABINE (DECITABINE) LYOPHILIZED POWDER [Suspect]
     Indication: ACUTE MYELOID LEUKAEMIA
     Dosage: 20 MG/M2, IN 1 DAY, INTRAVENOUS, 20 MG/M2, IN 1 DAY, INTRAVENOUS, 20 MG/M2, IN 1 DAY, INTRAVENOUS
     Route: 042
     Dates: start: 20091008, end: 20091012
  2. DECITABINE (DECITABINE) LYOPHILIZED POWDER [Suspect]
     Indication: ACUTE MYELOID LEUKAEMIA
     Dosage: 20 MG/M2, IN 1 DAY, INTRAVENOUS, 20 MG/M2, IN 1 DAY, INTRAVENOUS, 20 MG/M2, IN 1 DAY, INTRAVENOUS
     Route: 042
     Dates: start: 20090909
  3. DECITABINE (DECITABINE) LYOPHILIZED POWDER [Suspect]
     Indication: ACUTE MYELOID LEUKAEMIA
     Dosage: 20 MG/M2, IN 1 DAY, INTRAVENOUS, 20 MG/M2, IN 1 DAY, INTRAVENOUS, 20 MG/M2, IN 1 DAY, INTRAVENOUS
     Route: 042
     Dates: start: 20091109
  4. AMPHOTERICIN B [Suspect]
     Indication: DRUG USE FOR UNKNOWN INDICATION
     Dosage: 5 MG/KG, IN 12 HOUR, INTRAVENOUS
     Route: 042

REACTIONS (19)
  - ABDOMINAL PAIN [None]
  - ACUTE FEBRILE NEUTROPHILIC DERMATOSIS [None]
  - ACUTE MYOCARDIAL INFARCTION [None]
  - ARTHRALGIA [None]
  - BACTERIAL INFECTION [None]
  - CHILLS [None]
  - ECTHYMA [None]
  - ELECTROCARDIOGRAM ST SEGMENT DEPRESSION [None]
  - HERPES ZOSTER [None]
  - HYPOXIA [None]
  - MYOCARDIAL ISCHAEMIA [None]
  - NAUSEA [None]
  - PERIVASCULAR DERMATITIS [None]
  - PYODERMA GANGRENOSUM [None]
  - SKIN EXFOLIATION [None]
  - TACHYCARDIA [None]
  - THROMBOCYTOPENIA [None]
  - URINARY TRACT INFECTION [None]
  - WHITE BLOOD CELL COUNT DECREASED [None]
